FAERS Safety Report 5391054-7 (Version None)
Quarter: 2007Q3

REPORT INFORMATION
  Report Type: 
  Country: None (occurrence: None)
  Receive Date: 20070719
  Receipt Date: 20070711
  Transmission Date: 20080115
  Serious: Yes (Hospitalization, Other)
  Sender: FDA-Public Use
  Company Number: US-BRISTOL-MYERS SQUIBB COMPANY-13839386

PATIENT
  Age: 72 Year
  Sex: Male
  Weight: 72 kg

DRUGS (13)
  1. ATAZANAVIR SULFATE [Suspect]
     Indication: HIV INFECTION
  2. SIMVASTATIN [Interacting]
  3. AMIODARONE HCL [Interacting]
  4. STAVUDINE [Concomitant]
     Indication: HIV INFECTION
  5. DELAVIRDINE [Concomitant]
     Indication: HIV INFECTION
  6. ISOSORBIDE MONONITRATE [Concomitant]
  7. CLOPIDOGREL BISULFATE [Concomitant]
  8. ASPIRIN [Concomitant]
  9. METOPROLOL TARTRATE [Concomitant]
  10. TERAZOSIN HCL [Concomitant]
  11. FAMOTIDINE [Concomitant]
  12. POLYETHYLENE GLYCOL [Concomitant]
  13. DOCUSATE [Concomitant]

REACTIONS (3)
  - DRUG INTERACTION [None]
  - RENAL FAILURE ACUTE [None]
  - RHABDOMYOLYSIS [None]
